FAERS Safety Report 11649800 (Version 1)
Quarter: 2015Q4

REPORT INFORMATION
  Report Type: Spontaneous
  Country: US (occurrence: US)
  Receive Date: 20151021
  Receipt Date: 20151021
  Transmission Date: 20160304
  Serious: Yes (Other)
  Sender: FDA-Public Use
  Company Number: US-BAYER-2015-446977

PATIENT
  Age: 81 Year
  Sex: Female
  Weight: 76.64 kg

DRUGS (6)
  1. BAYER LOW DOSE [Suspect]
     Active Substance: ASPIRIN
     Indication: ISCHAEMIC HEART DISEASE PROPHYLAXIS
     Dosage: 1 DF, QD
     Route: 048
     Dates: start: 199206
  2. COREG [Concomitant]
     Active Substance: CARVEDILOL
     Dosage: UNK
  3. LEVOTHYROXINE. [Concomitant]
     Active Substance: LEVOTHYROXINE
     Dosage: UNK
  4. CLARITIN [Suspect]
     Active Substance: LORATADINE
     Indication: EAR DISCOMFORT
  5. ZITHROMAX [Concomitant]
     Active Substance: AZITHROMYCIN DIHYDRATE
     Dosage: UNK
  6. TICAGRELOR [Concomitant]
     Active Substance: TICAGRELOR
     Dosage: UNK

REACTIONS (4)
  - Intercepted drug prescribing error [None]
  - Coronary arterial stent insertion [None]
  - Product use issue [None]
  - Myocardial infarction [None]
